FAERS Safety Report 6010194-2 (Version None)
Quarter: 2008Q4

REPORT INFORMATION
  Report Type: 
  Country: None (occurrence: None)
  Receive Date: 20081218
  Receipt Date: 20080808
  Transmission Date: 20090506
  Serious: No
  Sender: FDA-Public Use
  Company Number: A0501118A

PATIENT
  Age: 65 Year
  Sex: Female

DRUGS (4)
  1. FLONASE [Suspect]
     Dosage: 2SPR PER DAY
     Route: 045
  2. WELLBUTRIN XL [Suspect]
     Indication: DRUG USE FOR UNKNOWN INDICATION
     Route: 048
  3. CLARINEX [Concomitant]
  4. SINGULAIR [Concomitant]

REACTIONS (3)
  - EPISTAXIS [None]
  - MIDDLE INSOMNIA [None]
  - SINUSITIS [None]
